FAERS Safety Report 14203639 (Version 1)
Quarter: 2017Q4

REPORT INFORMATION
  Report Type: Spontaneous
  Country: US (occurrence: None)
  Receive Date: 20171117
  Receipt Date: 20171117
  Transmission Date: 20180321
  Serious: Yes (Other)
  Sender: FDA-Public Use
  Company Number: None

PATIENT
  Age: 49 Year
  Sex: Female

DRUGS (1)
  1. REMICADE [Suspect]
     Active Substance: INFLIXIMAB
     Indication: RHEUMATOID ARTHRITIS
     Dosage: 3MG PER KG EVERY 8 WEEKS IV
     Route: 042
     Dates: start: 20170821, end: 20171115

REACTIONS (4)
  - Rash [None]
  - Pruritus [None]
  - Burning sensation [None]
  - Inflammation [None]

NARRATIVE: CASE EVENT DATE: 20171115
